FAERS Safety Report 5031188-X (Version None)
Quarter: 2006Q2

REPORT INFORMATION
  Report Type: 
  Country: None (occurrence: None)
  Receive Date: 20060615
  Receipt Date: 20060602
  Transmission Date: 20061013
  Serious: Yes (Hospitalization)
  Sender: FDA-Public Use
  Company Number: SP-2006-003032

PATIENT
  Age: 59 Year
  Sex: Male
  Weight: 120 kg

DRUGS (8)
  1. ALTEIS (OLMESARTAN MEDOXOMIL) [Suspect]
     Indication: ESSENTIAL HYPERTENSION
     Dosage: 20 MG QD PO
     Route: 048
  2. CORTANCYL [Suspect]
  3. ARANESP [Suspect]
     Dates: end: 20060218
  4. NEULASTA [Suspect]
     Dates: end: 20060218
  5. LOXEN [Suspect]
     Indication: ESSENTIAL HYPERTENSION
     Dosage: 100 MG DAILY PO
     Route: 048
  6. CYCLOPHOSPHAMIDE [Suspect]
  7. DOXORUBICIN [Suspect]
  8. ONCOVIN [Concomitant]

REACTIONS (5)
  - ACUTE CORONARY SYNDROME [None]
  - ANAEMIA [None]
  - ARTERIAL STENOSIS [None]
  - ELECTROCARDIOGRAM ST SEGMENT DEPRESSION [None]
  - HYPOKINESIA [None]
